FAERS Safety Report 21209931 (Version 3)
Quarter: 2022Q4

REPORT INFORMATION
  Report Type: Report from Study
  Country: US (occurrence: US)
  Receive Date: 20220813
  Receipt Date: 20221115
  Transmission Date: 20230112
  Serious: Yes (Hospitalization)
  Sender: FDA-Public Use
  Company Number: US-NOVARTISPH-NVSC2022US181694

PATIENT
  Age: 60 Year
  Sex: Male

DRUGS (2)
  1. KESIMPTA [Suspect]
     Active Substance: OFATUMUMAB
     Indication: Multiple sclerosis
     Dosage: 20 MG, QMO
     Route: 058
     Dates: start: 20210417
  2. KESIMPTA [Suspect]
     Active Substance: OFATUMUMAB
     Dosage: UNK (RESTARTED DOSE)
     Route: 058
     Dates: start: 202204

REACTIONS (11)
  - Haematological infection [Recovering/Resolving]
  - Urinary tract infection [Recovering/Resolving]
  - Multiple sclerosis relapse [Unknown]
  - Decreased appetite [Recovering/Resolving]
  - Asthenia [Not Recovered/Not Resolved]
  - Staphylococcal infection [Unknown]
  - Hypoaesthesia [Unknown]
  - Vertigo [Unknown]
  - Balance disorder [Unknown]
  - Product packaging difficult to open [Not Recovered/Not Resolved]
  - Product dose omission issue [Unknown]

NARRATIVE: CASE EVENT DATE: 20210417
